FAERS Safety Report 4347452-3 (Version None)
Quarter: 2004Q2

REPORT INFORMATION
  Report Type: 
  Country: None (occurrence: None)
  Receive Date: 20040426
  Receipt Date: 20040426
  Transmission Date: 20050107
  Serious: Yes (Hospitalization)
  Sender: FDA-Public Use
  Company Number: None

PATIENT
  Sex: Male
  Weight: 126.1 kg

DRUGS (3)
  1. WARFARIN SODIUM [Suspect]
     Indication: ATRIAL FIBRILLATION
     Dosage: 8.5 MG DAILY ORAL
     Route: 048
  2. ZITHROMAX [Suspect]
     Indication: CHRONIC OBSTRUCTIVE AIRWAYS DISEASE EXACERBATED
     Dosage: 500 AND 250 MG DAILY X 5 ORAL
     Route: 048
     Dates: start: 20040103, end: 20040107
  3. MEDROL [Concomitant]

REACTIONS (6)
  - ABDOMINAL PAIN [None]
  - CHRONIC OBSTRUCTIVE AIRWAYS DISEASE EXACERBATED [None]
  - FALL [None]
  - HYPOTENSION [None]
  - SWELLING [None]
  - SYNCOPE [None]
